FAERS Safety Report 7142319-X (Version None)
Quarter: 2010Q4

REPORT INFORMATION
  Report Type: 
  Country: None (occurrence: None)
  Receive Date: 20101207
  Receipt Date: 20101129
  Transmission Date: 20110411
  Serious: Yes (Life-Threatening, Hospitalization)
  Sender: FDA-Public Use
  Company Number: DE-PFIZER INC-2010158988

PATIENT
  Age: 52 Year
  Sex: Male

DRUGS (17)
  1. LYRICA [Interacting]
     Indication: ANXIETY DISORDER
     Dosage: 75 MG, 2X/DAY
     Route: 048
     Dates: start: 20081001, end: 20090115
  2. BACLOFEN [Interacting]
     Indication: MUSCLE SPASTICITY
     Dosage: 25 MG, 3X/DAY
     Route: 048
  3. DIPIPERON [Interacting]
     Indication: CEREBROVASCULAR ACCIDENT
     Dosage: 40 MG, 1X/DAY
     Route: 048
     Dates: end: 20090116
  4. ANTELEPSIN [Interacting]
     Indication: EPILEPSY
     Dosage: 1 MG, 1X/DAY
     Route: 048
     Dates: start: 20081112, end: 20090116
  5. TRAMAL [Suspect]
     Indication: BACK PAIN
     Dosage: 100 MG, 2X/DAY
     Route: 048
  6. CARBAMAZEPINE [Interacting]
     Indication: EPILEPSY
     Dosage: 400 MG, 1X/DAY
     Route: 048
  7. TOREM [Concomitant]
     Indication: RENAL IMPAIRMENT
     Dosage: 20 MG, 2X/DAY
     Route: 048
  8. CAPTOPRIL AND HYDROCHLOROTHIAZIDE [Concomitant]
     Indication: CARDIAC FAILURE
     Dosage: 50MG CAPTOPRL/25MG HCT, 2X/DAY
     Route: 048
  9. BEZAFIBRATE [Concomitant]
     Indication: METABOLIC SYNDROME
     Dosage: 400 MG, 2X/DAY
     Route: 048
     Dates: end: 20090115
  10. AGGRENOX [Concomitant]
     Indication: CEREBROVASCULAR ACCIDENT
     Dosage: 200MG DIPYRIDAMOLE/ 25MG ACETYLSALICYLIC ACID  , 2X/DAY
     Route: 048
     Dates: start: 19950101
  11. SPIRONO [Concomitant]
     Indication: CARDIAC FAILURE
     Dosage: 25 MG, 1X/DAY
     Route: 048
  12. TAMSULOSIN [Concomitant]
     Indication: BENIGN PROSTATIC HYPERPLASIA
     Dosage: 0.4 MG, 1X/DAY
     Route: 048
  13. IMBUN [Concomitant]
     Indication: BACK PAIN
     Dosage: 600 MG, 2X/DAY
     Route: 048
     Dates: end: 20090115
  14. MOVICOL [Concomitant]
     Indication: CONSTIPATION
     Dosage: 1 DF, 2X/DAY
     Route: 048
  15. METAMIZOLE [Concomitant]
     Indication: BACK PAIN
     Dosage: 20 GTT, 3X/DAY
     Route: 048
     Dates: start: 20090115
  16. INSULIN DETEMIR [Concomitant]
     Indication: TYPE 2 DIABETES MELLITUS
     Dosage: 4 IU, 1X/DAY
     Route: 058
  17. PANTOZOL [Concomitant]
     Indication: PROPHYLAXIS AGAINST GASTROINTESTINAL ULCER
     Dosage: 40 MG, 1X/DAY
     Route: 048
     Dates: start: 20081105

REACTIONS (4)
  - DRUG INTERACTION [None]
  - PLEURAL EFFUSION [None]
  - RESPIRATORY FAILURE [None]
  - SOMNOLENCE [None]
